FAERS Safety Report 7194255-0 (Version None)
Quarter: 2010Q4

REPORT INFORMATION
  Report Type: 
  Country: None (occurrence: None)
  Receive Date: 20101223
  Receipt Date: 20101119
  Transmission Date: 20110411
  Serious: No
  Sender: FDA-Public Use
  Company Number: US-AMGEN-TCS436500

PATIENT

DRUGS (4)
  1. ENBREL [Suspect]
     Indication: RHEUMATOID ARTHRITIS
     Dosage: 50 MG, QWK
     Route: 058
     Dates: start: 20080515
  2. ENBREL [Suspect]
     Dates: start: 20080515
  3. AZULFIDINE [Concomitant]
     Dosage: 1500 MG, QD
     Route: 048
     Dates: start: 20100701
  4. PLAQUENIL [Concomitant]
     Dosage: UNK
     Dates: end: 20080101

REACTIONS (20)
  - BLOOD COUNT ABNORMAL [None]
  - CHILLS [None]
  - DIARRHOEA [None]
  - FATIGUE [None]
  - FEELING ABNORMAL [None]
  - HEADACHE [None]
  - HYPOAESTHESIA [None]
  - INFLUENZA LIKE ILLNESS [None]
  - INTERVERTEBRAL DISC PROTRUSION [None]
  - MUSCULOSKELETAL CHEST PAIN [None]
  - NAUSEA [None]
  - PAIN [None]
  - PAIN IN EXTREMITY [None]
  - PANCREATITIS CHRONIC [None]
  - RETCHING [None]
  - RHEUMATOID ARTHRITIS [None]
  - SINUS DISORDER [None]
  - STRESS [None]
  - THERAPEUTIC RESPONSE DECREASED [None]
  - VOMITING [None]
